FAERS Safety Report 19468615 (Version 1)
Quarter: 2021Q2

REPORT INFORMATION
  Report Type: Spontaneous
  Country: GB (occurrence: GB)
  Receive Date: 20210628
  Receipt Date: 20210628
  Transmission Date: 20210717
  Serious: Yes (Other)
  Sender: FDA-Public Use
  Company Number: GB-TEVA-2021-GB-1926589

PATIENT
  Age: 64 Year
  Sex: Male
  Weight: 140 kg

DRUGS (13)
  1. WARFARIN [Suspect]
     Active Substance: WARFARIN
     Dosage: 3 MG
  2. APIXABAN [Concomitant]
     Active Substance: APIXABAN
     Dosage: 10 MILLIGRAM DAILY;
     Dates: start: 20210518, end: 20210520
  3. MORPHGESIC [Concomitant]
     Active Substance: MORPHINE SULFATE
     Dosage: 2 DOSAGE FORMS DAILY;
     Dates: start: 20210305
  4. WARFARIN [Suspect]
     Active Substance: WARFARIN
     Dosage: TAKE AS PER INR CHART,  500MICROGRAM
     Route: 048
     Dates: start: 20210315
  5. WARFARIN [Suspect]
     Active Substance: WARFARIN
     Dosage: 1 MG
  6. MST CONTINUS [Concomitant]
     Active Substance: MORPHINE SULFATE
     Dosage: 10 MG
  7. PREDNISOLONE. [Concomitant]
     Active Substance: PREDNISOLONE
     Dosage: 40 MILLIGRAM DAILY; AFTER FOOD
     Dates: start: 20210412
  8. ANGITIL SR [Concomitant]
     Dosage: 2 DOSAGE FORMS DAILY;
     Dates: start: 20210412
  9. DUORESP SPIROMAX [Concomitant]
     Active Substance: BUDESONIDE\FORMOTEROL
     Dosage: 2 DOSAGE FORMS DAILY; ONE PUFF
     Dates: start: 20210318
  10. FLUCLOXACILLIN [Concomitant]
     Active Substance: FLUCLOXACILLIN
     Dosage: 2000 MILLIGRAM DAILY;
     Dates: start: 20210324
  11. MST CONTINUS [Concomitant]
     Active Substance: MORPHINE SULFATE
     Dosage: 30 MILLIGRAM DAILY;
     Dates: start: 20210305
  12. PROPRANOLOL [Concomitant]
     Active Substance: PROPRANOLOL HYDROCHLORIDE
     Dosage: 1?2 UP TO THREE TIMES A DAY WHEN REQUIRED, 10 MG
     Dates: start: 20210315
  13. VENTOLIN [Concomitant]
     Active Substance: ALBUTEROL SULFATE
     Dosage: TAKE 1 TO 2 PUFFS UP TO FOUR TIMES A DAY AS REQUIRED
     Dates: start: 20210315

REACTIONS (1)
  - Erectile dysfunction [Recovering/Resolving]
